FAERS Safety Report 8995750 (Version 2)
Quarter: 2013Q3

REPORT INFORMATION
  Report Type: Spontaneous
  Country: US (occurrence: US)
  Receive Date: 20130103
  Receipt Date: 20130909
  Transmission Date: 20140515
  Serious: Yes (Other)
  Sender: FDA-Public Use
  Company Number: US-ABBOTT-12P-163-0967935-00

PATIENT
  Age: 35 Year
  Sex: Female
  Weight: 77.18 kg

DRUGS (4)
  1. SYNTHROID [Suspect]
     Indication: HYPOTHYROIDISM
     Dosage: 1 DAILY 5 DAYS PER WEEK
     Route: 048
     Dates: start: 1990, end: 2012
  2. SYNTHROID [Suspect]
     Dosage: 1 DAILY 6 DAYS PER WEEK
     Dates: start: 2013
  3. SYNTHROID [Suspect]
     Indication: HYPOTHYROIDISM
     Dates: start: 2012, end: 2013
  4. ANTIDEPRESSANTS [Concomitant]
     Indication: PRODUCT USED FOR UNKNOWN INDICATION

REACTIONS (3)
  - Amniorrhoea [Recovered/Resolved]
  - Blood thyroid stimulating hormone increased [Recovering/Resolving]
  - Vomiting in pregnancy [Recovered/Resolved]
